FAERS Safety Report 14702296 (Version 5)
Quarter: 2019Q1

REPORT INFORMATION
  Report Type: Spontaneous
  Country: JP (occurrence: JP)
  Receive Date: 20180401
  Receipt Date: 20190227
  Transmission Date: 20190417
  Serious: Yes (Hospitalization, Other)
  Sender: FDA-Public Use
  Company Number: JP-SHIRE-JP201812028

PATIENT

DRUGS (4)
  1. LIALDA [Suspect]
     Active Substance: MESALAMINE
     Indication: COLITIS ULCERATIVE
     Dosage: 4800 MG, 1X/DAY:QD
     Route: 048
     Dates: start: 20180101, end: 20180319
  2. ETIZOLAM [Concomitant]
     Active Substance: ETIZOLAM
     Indication: MENTAL DISORDER
  3. LUNESTA [Concomitant]
     Active Substance: ESZOPICLONE
     Indication: MENTAL DISORDER
  4. MESALAZINE [Concomitant]
     Active Substance: MESALAMINE
     Indication: PRODUCT USED FOR UNKNOWN INDICATION

REACTIONS (2)
  - Pancreatitis acute [Recovering/Resolving]
  - Colitis ulcerative [Unknown]

NARRATIVE: CASE EVENT DATE: 20180310
